FAERS Safety Report 7255813-8 (Version None)
Quarter: 2011Q1

REPORT INFORMATION
  Report Type: 
  Country: None (occurrence: None)
  Receive Date: 20110129
  Receipt Date: 20100702
  Transmission Date: 20110831
  Serious: No
  Sender: FDA-Public Use
  Company Number: PR-ABBOTT-10P-131-0649615-00

PATIENT
  Sex: Female
  Weight: 181.6 kg

DRUGS (4)
  1. METHOTREXATE [Concomitant]
     Indication: RHEUMATOID ARTHRITIS
     Dosage: 2.5MG X 8 WEEKLY
     Route: 048
  2. HUMIRA [Suspect]
     Indication: RHEUMATOID ARTHRITIS
     Dosage: ONE PEN
     Route: 058
     Dates: start: 20050101, end: 20100401
  3. BENGAY [Concomitant]
     Indication: PAIN
     Dosage: PATCHES
     Route: 061
  4. LISINOPRIL [Concomitant]
     Indication: HYPERTENSION
     Route: 048

REACTIONS (7)
  - ARTHROPATHY [None]
  - SWELLING [None]
  - NODULE [None]
  - NUCHAL RIGIDITY [None]
  - DRUG DOSE OMISSION [None]
  - GAIT DISTURBANCE [None]
  - DRUG INEFFECTIVE [None]
